FAERS Safety Report 8228873-5 (Version None)
Quarter: 2012Q1

REPORT INFORMATION
  Report Type: 
  Country: None (occurrence: None)
  Receive Date: 20120322
  Receipt Date: 20120307
  Transmission Date: 20120608
  Serious: Yes (Congenital Anomaly, Other)
  Sender: FDA-Public Use
  Company Number: HU-WATSON-2012-04718

PATIENT
  Sex: Male

DRUGS (5)
  1. HYDROXYETHYLRUTOSIDEA [Suspect]
     Indication: FOETAL EXPOSURE DURING PREGNANCY
  2. CLOTRIMAZOLE [Suspect]
     Indication: FOETAL EXPOSURE DURING PREGNANCY
  3. ACETAMINOPHEN [Suspect]
     Indication: FOETAL EXPOSURE DURING PREGNANCY
     Dosage: UNK
     Route: 064
  4. AMPICILLIN SODIUM [Suspect]
     Indication: FOETAL EXPOSURE DURING PREGNANCY
     Dosage: UNK
     Route: 064
  5. METRONIDAZOLE [Suspect]
     Indication: FOETAL EXPOSURE DURING PREGNANCY
     Dosage: UNK
     Route: 064

REACTIONS (4)
  - SYNDACTYLY [None]
  - HYPOSPADIAS [None]
  - MICROTIA [None]
  - FOETAL EXPOSURE DURING PREGNANCY [None]
